FAERS Safety Report 5081601-7 (Version None)
Quarter: 2006Q3

REPORT INFORMATION
  Report Type: 
  Country: None (occurrence: None)
  Receive Date: 20060810
  Receipt Date: 20060728
  Transmission Date: 20061208
  Serious: Yes (Hospitalization)
  Sender: FDA-Public Use
  Company Number: JP200607004947

PATIENT
  Age: 47 Year
  Sex: Female

DRUGS (5)
  1. HUMALOG [Suspect]
     Indication: DIABETES MELLITUS INSULIN-DEPENDENT
     Dosage: 37 U, UNK, SUBCUTANEOUS
     Route: 058
     Dates: start: 20060706
  2. VOLTAREN [Concomitant]
  3. LANTUS [Concomitant]
  4. NOVORAPID (INSULIN ASPART) [Concomitant]
  5. HUMALOG PEN (HUMALOG PEN) [Concomitant]

REACTIONS (4)
  - ALANINE AMINOTRANSFERASE INCREASED [None]
  - ASPARTATE AMINOTRANSFERASE INCREASED [None]
  - GAMMA-GLUTAMYLTRANSFERASE INCREASED [None]
  - LIVER DISORDER [None]
